FAERS Safety Report 23912225 (Version 1)
Quarter: 2024Q2

REPORT INFORMATION
  Report Type: Spontaneous
  Country: US (occurrence: US)
  Receive Date: 20240528
  Receipt Date: 20240528
  Transmission Date: 20240716
  Serious: Yes (Other)
  Sender: FDA-Public Use
  Company Number: US-VEROBIOTECH-2024USVEROSPO00103

PATIENT
  Sex: Female

DRUGS (2)
  1. GENOSYL [Suspect]
     Active Substance: NITRIC OXIDE
     Indication: Product used for unknown indication
     Dosage: 5 PPM
  2. GENOSYL [Suspect]
     Active Substance: NITRIC OXIDE
     Dosage: 17 PPM

REACTIONS (2)
  - Oxygen saturation decreased [Unknown]
  - Overdose [Unknown]
